FAERS Safety Report 9866430 (Version 1)
Quarter: 2014Q1

REPORT INFORMATION
  Report Type: Spontaneous
  Country: NO (occurrence: NO)
  Receive Date: 20140204
  Receipt Date: 20140204
  Transmission Date: 20141002
  Serious: Yes (Death, Other)
  Sender: FDA-Public Use
  Company Number: NO-009507513-1401NOR013077

PATIENT
  Age: 66 Year
  Sex: Female

DRUGS (1)
  1. TEMOZOLOMIDE [Suspect]
     Indication: GLIOBLASTOMA
     Dosage: 120 MG, QD
     Route: 048
     Dates: start: 20130529, end: 20130624

REACTIONS (4)
  - Neutropenia [Fatal]
  - Agranulocytosis [Fatal]
  - Bone marrow failure [Fatal]
  - Thrombocytopenia [Fatal]
